FAERS Safety Report 8203895-9 (Version None)
Quarter: 2012Q1

REPORT INFORMATION
  Report Type: 
  Country: None (occurrence: None)
  Receive Date: 20120227
  Receipt Date: 20111206
  Transmission Date: 20120608
  Serious: No
  Sender: FDA-Public Use
  Company Number: 340881

PATIENT
  Age: 64 Year
  Sex: Male

DRUGS (2)
  1. METFORMIN HYDROCHLORIDE [Concomitant]
  2. VICTOZA [Suspect]
     Indication: TYPE 2 DIABETES MELLITUS
     Dosage: , SUBCUTANEOUS
     Route: 058

REACTIONS (4)
  - HEADACHE [None]
  - FATIGUE [None]
  - DECREASED APPETITE [None]
  - NAUSEA [None]
